FAERS Safety Report 6193932-8 (Version None)
Quarter: 2009Q2

REPORT INFORMATION
  Report Type: 
  Country: None (occurrence: None)
  Receive Date: 20090512
  Receipt Date: 20090428
  Transmission Date: 20091009
  Serious: Yes (Hospitalization)
  Sender: FDA-Public Use
  Company Number: KR-JNJFOC-20090306956

PATIENT
  Age: 52 Year
  Sex: Female
  Weight: 55.8 kg

DRUGS (11)
  1. DECITABINE (DECITABINE) LYOPHILIZED POWDER [Suspect]
     Indication: MYELODYSPLASTIC SYNDROME
     Dosage: 20 MG/M2, 1 IN 1 DAY, INTRAVENOUS; 20 MG/M2, 1 IN 1 DAY, INTRAVENOUS
     Route: 042
     Dates: start: 20090305, end: 20090309
  2. DECITABINE (DECITABINE) LYOPHILIZED POWDER [Suspect]
     Indication: MYELODYSPLASTIC SYNDROME
     Dosage: 20 MG/M2, 1 IN 1 DAY, INTRAVENOUS; 20 MG/M2, 1 IN 1 DAY, INTRAVENOUS
     Route: 042
     Dates: start: 20090407, end: 20090411
  3. LEVOFLOXACIN [Concomitant]
  4. FLUCONAZOLE [Concomitant]
  5. LACTULOSE [Concomitant]
  6. FOLIC ACID [Concomitant]
  7. LEVOSULPIRIDE (LEVOSULPIRIDE) [Concomitant]
  8. MAGNESIUM OXIDE (MAGNESIUM OXIDE) [Concomitant]
  9. SEPTRIN (SEPTRIN) [Concomitant]
  10. CALCIUM POLYCARBOPHIL (POLYCARBOPHIL CALCIUM) [Concomitant]
  11. NASEA (NASEA) [Concomitant]

REACTIONS (2)
  - FEBRILE NEUTROPENIA [None]
  - HERPES SIMPLEX [None]
